FAERS Safety Report 6288099-1 (Version None)
Quarter: 2009Q3

REPORT INFORMATION
  Report Type: 
  Country: None (occurrence: None)
  Receive Date: 20090729
  Receipt Date: 20080821
  Transmission Date: 20100115
  Serious: No
  Sender: FDA-Public Use
  Company Number: A0743965A

PATIENT
  Sex: Female

DRUGS (3)
  1. ZANTAC [Suspect]
     Dosage: 150MG PER DAY
     Route: 048
     Dates: start: 20080728
  2. AMITREX [Concomitant]
  3. AMLODIPINE [Concomitant]

REACTIONS (4)
  - ABDOMINAL PAIN UPPER [None]
  - ORAL DISCOMFORT [None]
  - PRODUCT QUALITY ISSUE [None]
  - SOMNOLENCE [None]
